FAERS Safety Report 7145568-X (Version None)
Quarter: 2010Q4

REPORT INFORMATION
  Report Type: 
  Country: None (occurrence: None)
  Receive Date: 20101124
  Receipt Date: 20101108
  Transmission Date: 20110411
  Serious: Yes (Hospitalization)
  Sender: FDA-Public Use
  Company Number: BVT-000753

PATIENT
  Age: 34 Month
  Sex: Female

DRUGS (1)
  1. ANAKINRA [Suspect]
     Indication: CHRONIC INFANTILE NEUROLOGICAL CUTANEOUS AND ARTICULAR SYNDROME
     Dosage: (SUBCUTANEOUS)
     Route: 058

REACTIONS (3)
  - CONVULSION [None]
  - INFECTION [None]
  - TIC [None]
